FAERS Safety Report 11911057 (Version 2)
Quarter: 2016Q1

REPORT INFORMATION
  Report Type: Spontaneous
  Country: PE (occurrence: PE)
  Receive Date: 20160112
  Receipt Date: 20160125
  Transmission Date: 20160526
  Serious: Yes (Other)
  Sender: FDA-Public Use
  Company Number: PE-PFIZER INC-2016007294

PATIENT
  Age: 37 Year
  Sex: Female

DRUGS (3)
  1. EFFEXOR XR [Suspect]
     Active Substance: VENLAFAXINE HYDROCHLORIDE
     Indication: DEPRESSION
     Dosage: 75 MG, DAILY IN THE AFTERNOON
     Route: 048
     Dates: start: 20151226
  2. PAROXETINE [Concomitant]
     Active Substance: PAROXETINE\PAROXETINE HYDROCHLORIDE
     Indication: DEPRESSION
     Dosage: 20MG IN THE MORNING
     Route: 048
  3. CARBAMAZEPINE. [Concomitant]
     Active Substance: CARBAMAZEPINE
     Indication: ANXIETY
     Dosage: HALF TABLET IN THE NIGHT
     Route: 048

REACTIONS (5)
  - Accident [Recovering/Resolving]
  - Sluggishness [Recovering/Resolving]
  - Ankle fracture [Recovering/Resolving]
  - Somnolence [Recovering/Resolving]
  - Constipation [Recovering/Resolving]

NARRATIVE: CASE EVENT DATE: 20151226
